FAERS Safety Report 24035899 (Version 1)
Quarter: 2024Q3

REPORT INFORMATION
  Report Type: Spontaneous
  Country: FR (occurrence: FR)
  Receive Date: 20240701
  Receipt Date: 20240701
  Transmission Date: 20241016
  Serious: Yes (Other)
  Sender: MYLAN
  Company Number: FR-MYLANLABS-2024M1061510

PATIENT
  Age: 3 Year
  Sex: Male

DRUGS (20)
  1. ITRACONAZOLE [Suspect]
     Active Substance: ITRACONAZOLE
     Indication: Fusarium infection
     Dosage: UNK
     Route: 065
  2. ITRACONAZOLE [Suspect]
     Active Substance: ITRACONAZOLE
     Indication: Fungal skin infection
  3. TERBINAFINE [Suspect]
     Active Substance: TERBINAFINE
     Indication: Fusarium infection
     Dosage: UNK
     Route: 065
  4. TERBINAFINE [Suspect]
     Active Substance: TERBINAFINE
     Indication: Fungal skin infection
  5. CHLORHEXIDINE [Suspect]
     Active Substance: CHLORHEXIDINE
     Indication: Fusarium infection
     Dosage: UNK
     Route: 065
  6. CHLORHEXIDINE [Suspect]
     Active Substance: CHLORHEXIDINE
     Indication: Fungal skin infection
  7. IMIQUIMOD [Suspect]
     Active Substance: IMIQUIMOD
     Indication: Fusarium infection
     Dosage: UNK
     Route: 065
  8. IMIQUIMOD [Suspect]
     Active Substance: IMIQUIMOD
     Indication: Fungal skin infection
  9. POSACONAZOLE [Suspect]
     Active Substance: POSACONAZOLE
     Indication: Fusarium infection
     Dosage: UNK
     Route: 065
  10. POSACONAZOLE [Suspect]
     Active Substance: POSACONAZOLE
     Indication: Fungal skin infection
  11. POLIHEXANIDE HYDROCHLORIDE [Suspect]
     Active Substance: POLIHEXANIDE HYDROCHLORIDE
     Indication: Fusarium infection
     Dosage: UNK
     Route: 065
  12. POLIHEXANIDE HYDROCHLORIDE [Suspect]
     Active Substance: POLIHEXANIDE HYDROCHLORIDE
     Indication: Fungal skin infection
  13. SILVER SULFADIAZINE [Suspect]
     Active Substance: SILVER SULFADIAZINE
     Indication: Fusarium infection
     Dosage: UNK
     Route: 065
  14. SILVER SULFADIAZINE [Suspect]
     Active Substance: SILVER SULFADIAZINE
     Indication: Fungal skin infection
  15. NYSTATIN [Suspect]
     Active Substance: NYSTATIN
     Indication: Fusarium infection
     Dosage: UNK
     Route: 065
  16. NYSTATIN [Suspect]
     Active Substance: NYSTATIN
     Indication: Fungal skin infection
  17. GENTIAN VIOLET [Suspect]
     Active Substance: GENTIAN VIOLET
     Indication: Fusarium infection
     Dosage: UNK
     Route: 065
  18. GENTIAN VIOLET [Suspect]
     Active Substance: GENTIAN VIOLET
     Indication: Fungal skin infection
  19. VORICONAZOLE [Concomitant]
     Active Substance: VORICONAZOLE
     Indication: Fusarium infection
     Dosage: UNK
     Route: 065
  20. VORICONAZOLE [Concomitant]
     Active Substance: VORICONAZOLE
     Indication: Fungal skin infection

REACTIONS (2)
  - Drug ineffective [Unknown]
  - Off label use [Unknown]
